FAERS Safety Report 18212263 (Version 2)
Quarter: 2020Q3

REPORT INFORMATION
  Report Type: Spontaneous
  Country: US (occurrence: US)
  Receive Date: 20200831
  Receipt Date: 20200909
  Transmission Date: 20201103
  Serious: Yes (Other)
  Sender: FDA-Public Use
  Company Number: US-TEVA-2020-US-1821470

PATIENT
  Sex: Male

DRUGS (6)
  1. CARMUSTINE. [Suspect]
     Active Substance: CARMUSTINE
     Indication: CUTANEOUS T-CELL LYMPHOMA
     Dosage: APPLIED OVERNIGHT 5?7 TIMES WEEKLY
     Route: 061
  2. ACITRETIN. [Suspect]
     Active Substance: ACITRETIN
     Indication: CUTANEOUS T-CELL LYMPHOMA
     Route: 065
  3. ROMIDEPSIN. [Suspect]
     Active Substance: ROMIDEPSIN
     Indication: CUTANEOUS T-CELL LYMPHOMA
     Route: 065
  4. INTERFERON?GAMMA [Concomitant]
     Active Substance: INTERFERON GAMMA
     Indication: CUTANEOUS T-CELL LYMPHOMA
     Dosage: DOSE INCREASED TO 100 UG THREE TIMES WEEKLY AFTER 2 WEEKS
     Route: 058
  5. ISOTRETINOIN. [Concomitant]
     Active Substance: ISOTRETINOIN
     Indication: CUTANEOUS T-CELL LYMPHOMA
     Dosage: 10 MILLIGRAM DAILY; DOSE INCREASED TO 20MG DAILY AS TOLERATED
     Route: 065
  6. INTERFERON?GAMMA [Concomitant]
     Active Substance: INTERFERON GAMMA
     Indication: CUTANEOUS T-CELL LYMPHOMA
     Dosage: 150 MICROGRAM DAILY; ADMINISTERED THREE TIMES WEEKLY
     Route: 058

REACTIONS (2)
  - Telangiectasia [Unknown]
  - Treatment failure [Unknown]
